FAERS Safety Report 25135233 (Version 1)
Quarter: 2025Q1

REPORT INFORMATION
  Report Type: Spontaneous
  Country: JP (occurrence: JP)
  Receive Date: 20250328
  Receipt Date: 20250328
  Transmission Date: 20250409
  Serious: Yes (Death)
  Sender: AMGEN
  Company Number: JP-AMGEN-JPNSP2025060114

PATIENT
  Sex: Male

DRUGS (17)
  1. LUMAKRAS [Suspect]
     Active Substance: SOTORASIB
     Indication: K-ras gene mutation
     Dosage: 960 MILLIGRAM, QD
     Route: 048
     Dates: start: 20221107
  2. LUMAKRAS [Suspect]
     Active Substance: SOTORASIB
     Indication: Non-small cell lung cancer
  3. DENOSUMAB [Concomitant]
     Active Substance: DENOSUMAB
     Route: 058
  4. OXYCODONE [Concomitant]
     Active Substance: OXYCODONE
     Dates: end: 20230110
  5. Oxinorm [Concomitant]
     Dates: end: 20221227
  6. SYMPROIC [Concomitant]
     Active Substance: NALDEMEDINE TOSYLATE
     Indication: Prophylaxis
     Dates: end: 20230110
  7. MAGNESIUM OXIDE [Concomitant]
     Active Substance: MAGNESIUM OXIDE
     Indication: Prophylaxis
     Dates: end: 20230202
  8. LOXOPROFEN SODIUM [Concomitant]
     Active Substance: LOXOPROFEN SODIUM
  9. ORENCIA [Concomitant]
     Active Substance: ABATACEPT
  10. LOXOPROFEN [Concomitant]
     Active Substance: LOXOPROFEN
  11. REBAMIPIDE [Concomitant]
     Active Substance: REBAMIPIDE
     Indication: Prophylaxis
  12. CALCIUM CARBONATE\CHOLECALCIFEROL\MAGNESIUM CARBONATE [Concomitant]
     Active Substance: CALCIUM CARBONATE\CHOLECALCIFEROL\MAGNESIUM CARBONATE
     Indication: Prophylaxis
  13. TACROLIMUS [Concomitant]
     Active Substance: TACROLIMUS
  14. COLCHICINE [Concomitant]
     Active Substance: COLCHICINE
     Dates: end: 20230202
  15. METHOTREXATE [Concomitant]
     Active Substance: METHOTREXATE
  16. FOLIC ACID [Concomitant]
     Active Substance: FOLIC ACID
     Indication: Prophylaxis
  17. KENACORT [Concomitant]
     Active Substance: TRIAMCINOLONE
     Dates: end: 20231016

REACTIONS (1)
  - Gastric cancer [Fatal]
